FAERS Safety Report 8053424-8 (Version None)
Quarter: 2012Q1

REPORT INFORMATION
  Report Type: 
  Country: None (occurrence: None)
  Receive Date: 20120118
  Receipt Date: 20120113
  Transmission Date: 20120608
  Serious: Yes (Hospitalization, Disabling)
  Sender: FDA-Public Use
  Company Number: US-GLAXOSMITHKLINE-A0961408A

PATIENT
  Age: 42 Year
  Sex: Female
  Weight: 57.7 kg

DRUGS (3)
  1. FLUOXETINE [Concomitant]
  2. OMEPRAZOLE [Concomitant]
  3. HORIZANT [Suspect]
     Indication: PERIODIC LIMB MOVEMENT DISORDER
     Dosage: 600MG PER DAY
     Route: 048

REACTIONS (8)
  - MYDRIASIS [None]
  - FEELING ABNORMAL [None]
  - CHEST PAIN [None]
  - FEELING DRUNK [None]
  - HANGOVER [None]
  - HYPOTENSION [None]
  - FATIGUE [None]
  - ADVERSE EVENT [None]
